FAERS Safety Report 8443955-0 (Version None)
Quarter: 2012Q2

REPORT INFORMATION
  Report Type: 
  Country: None (occurrence: None)
  Receive Date: 20120618
  Receipt Date: 20120606
  Transmission Date: 20120825
  Serious: Yes (Death, Life-Threatening, Hospitalization, Other)
  Sender: FDA-Public Use
  Company Number: FR-MILLENNIUM PHARMACEUTICALS, INC.-2012-03924

PATIENT

DRUGS (3)
  1. VELCADE [Suspect]
     Indication: MULTIPLE MYELOMA
     Dosage: 2.1 MG, UNK
     Route: 058
     Dates: start: 20120522, end: 20120529
  2. JNJ-26481585 [Suspect]
     Indication: MULTIPLE MYELOMA
     Dosage: 12 MG, UNK
     Route: 048
     Dates: start: 20120521, end: 20120531
  3. DEXAMETHASONE [Suspect]
     Indication: MULTIPLE MYELOMA
     Dosage: 20 MG, UNK
     Route: 048
     Dates: start: 20120522, end: 20120529

REACTIONS (6)
  - BACK PAIN [None]
  - HYPOTENSION [None]
  - DYSPNOEA [None]
  - THROMBOCYTOPENIA [None]
  - DEATH [None]
  - ELECTROCARDIOGRAM QT PROLONGED [None]
